FAERS Safety Report 7223684-1 (Version None)
Quarter: 2011Q1

REPORT INFORMATION
  Report Type: 
  Country: None (occurrence: None)
  Receive Date: 20110112
  Receipt Date: 20101020
  Transmission Date: 20110831
  Serious: No
  Sender: FDA-Public Use
  Company Number: US-ALLERGAN-1013454US

PATIENT
  Sex: Male

DRUGS (1)
  1. RESTASIS [Suspect]
     Indication: PRODUCT USED FOR UNKNOWN INDICATION
     Dosage: 1 GTT, BID
     Dates: start: 20100301

REACTIONS (1)
  - RETINOPATHY [None]
